FAERS Safety Report 18868675 (Version 2)
Quarter: 2021Q1

REPORT INFORMATION
  Report Type: Spontaneous
  Country: IT (occurrence: IT)
  Receive Date: 20210209
  Receipt Date: 20210312
  Transmission Date: 20210420
  Serious: Yes (Hospitalization)
  Sender: FDA-Public Use
  Company Number: IT-ALLERGAN-2105521US

PATIENT
  Sex: Female
  Weight: 50 kg

DRUGS (1)
  1. ESCITALOPRAM OXALATE ? BP [Suspect]
     Active Substance: ESCITALOPRAM OXALATE
     Indication: INTENTIONAL OVERDOSE
     Dosage: 300 MG
     Route: 048
     Dates: start: 20210108, end: 20210108

REACTIONS (4)
  - Intentional overdose [Unknown]
  - Sopor [Recovered/Resolved]
  - Confusional state [Recovered/Resolved]
  - Tremor [Recovered/Resolved]

NARRATIVE: CASE EVENT DATE: 20210108
